FAERS Safety Report 10816018 (Version 1)
Quarter: 2015Q1

REPORT INFORMATION
  Report Type: Report from Study
  Country: US (occurrence: US)
  Receive Date: 20150218
  Receipt Date: 20150218
  Transmission Date: 20150721
  Serious: No
  Sender: FDA-Public Use
  Company Number: US-ABBVIE-14K-163-1286213-00

PATIENT
  Age: 57 Year
  Sex: Female

DRUGS (5)
  1. UNKNOWN NEBULIZER [Concomitant]
     Indication: PRODUCT USED FOR UNKNOWN INDICATION
     Dosage: TREATMENTS
  2. UNKNOWN INHALERS [Concomitant]
     Indication: PRODUCT USED FOR UNKNOWN INDICATION
     Dosage: TREATMENTS
     Route: 055
  3. UNKNOWN MULTIPLE MEDICATION [Concomitant]
     Active Substance: UNSPECIFIED INGREDIENT
     Indication: PRODUCT USED FOR UNKNOWN INDICATION
  4. HUMIRA [Suspect]
     Active Substance: ADALIMUMAB
     Indication: RHEUMATOID ARTHRITIS
     Dates: start: 2013
  5. OXYGEN. [Concomitant]
     Active Substance: OXYGEN
     Indication: PRODUCT USED FOR UNKNOWN INDICATION
     Dosage: DURING THE DAY AND CONTINUOUSLY AT NIGHT (UNKNOWN LITER FLOW)

REACTIONS (6)
  - Swelling [Unknown]
  - Swelling [Unknown]
  - Bone pain [Not Recovered/Not Resolved]
  - Swelling face [Unknown]
  - Weight decreased [Not Recovered/Not Resolved]
  - Peripheral swelling [Unknown]

NARRATIVE: CASE EVENT DATE: 20140914
